FAERS Safety Report 8189838-5 (Version None)
Quarter: 2012Q1

REPORT INFORMATION
  Report Type: 
  Country: None (occurrence: None)
  Receive Date: 20120307
  Receipt Date: 20111013
  Transmission Date: 20120608
  Serious: No
  Sender: FDA-Public Use
  Company Number: US-GLAXOSMITHKLINE-A0948980A

PATIENT
  Sex: Female

DRUGS (16)
  1. LEXAPRO [Concomitant]
  2. COUMADIN [Concomitant]
  3. ALBUTEROL SULFATE [Concomitant]
     Route: 055
  4. PROTONIX [Concomitant]
  5. POTASSIUM CHLORIDE [Concomitant]
  6. SPIRIVA [Concomitant]
  7. HYDROCODONE BITARTRATE [Concomitant]
  8. SYNTHROID [Concomitant]
  9. FUROSEMIDE [Concomitant]
  10. IRON [Concomitant]
  11. REQUIP [Suspect]
     Indication: RESTLESS LEGS SYNDROME
     Route: 048
     Dates: start: 20070101
  12. TOPROL-XL [Concomitant]
  13. MAGNESIUM OXIDE [Concomitant]
  14. ADVAIR DISKUS 100/50 [Concomitant]
  15. ALBUTEROL [Concomitant]
  16. CRESTOR [Concomitant]

REACTIONS (1)
  - INCORRECT DOSE ADMINISTERED [None]
